FAERS Safety Report 20544193 (Version 1)
Quarter: 2022Q1

REPORT INFORMATION
  Report Type: Spontaneous
  Country: US (occurrence: None)
  Receive Date: 20220303
  Receipt Date: 20220303
  Transmission Date: 20220423
  Serious: Yes (Death, Other)
  Sender: FDA-Public Use
  Company Number: US-MDD US Operations-MDD202202-000318

PATIENT
  Age: 86 Year
  Sex: Male

DRUGS (1)
  1. APOKYN [Suspect]
     Active Substance: APOMORPHINE HYDROCHLORIDE
     Indication: Parkinson^s disease
     Dates: start: 2012

REACTIONS (3)
  - Death [Fatal]
  - General physical health deterioration [Unknown]
  - Bedridden [Unknown]

NARRATIVE: CASE EVENT DATE: 20220222
